FAERS Safety Report 5416517-7 (Version None)
Quarter: 2007Q3

REPORT INFORMATION
  Report Type: 
  Country: None (occurrence: None)
  Receive Date: 20070814
  Receipt Date: 20070809
  Transmission Date: 20080115
  Serious: Yes (Life-Threatening, Hospitalization)
  Sender: FDA-Public Use
  Company Number: E2090-00277-SPO-JP

PATIENT
  Age: 40 Year
  Sex: Female

DRUGS (8)
  1. ZONISAMIDE [Suspect]
     Indication: CONVULSION PROPHYLAXIS
     Dosage: 150 MG, ORAL
     Route: 048
     Dates: start: 20070613, end: 20070623
  2. ZONISAMIDE [Suspect]
     Indication: EPILEPSY
     Dosage: 150 MG, ORAL
     Route: 048
     Dates: start: 20070613, end: 20070623
  3. ZONISAMIDE [Suspect]
     Indication: POST PROCEDURAL COMPLICATION
     Dosage: 150 MG, ORAL
     Route: 048
     Dates: start: 20070613, end: 20070623
  4. RECOGNAN                (CITICOLINE) [Concomitant]
  5. ROXATIDINE ACETATE HCL [Concomitant]
  6. PENMALIN           (PIPERACILLIN SODIUM) [Concomitant]
  7. PHENOBARBITAL TAB [Concomitant]
  8. ALUMINUM HYDROXIDE AND MAGNESIUM TRISILICATE [Concomitant]

REACTIONS (4)
  - ANAEMIA [None]
  - POST PROCEDURAL COMPLICATION [None]
  - PYREXIA [None]
  - WHITE BLOOD CELL COUNT DECREASED [None]
